FAERS Safety Report 24897387 (Version 1)
Quarter: 2025Q1

REPORT INFORMATION
  Report Type: Spontaneous
  Country: AT (occurrence: AT)
  Receive Date: 20250129
  Receipt Date: 20250129
  Transmission Date: 20250408
  Serious: Yes (Other)
  Sender: AMGEN
  Company Number: AT-JNJFOC-20241260166

PATIENT
  Age: 57 Year
  Sex: Male

DRUGS (11)
  1. CARFILZOMIB [Suspect]
     Active Substance: CARFILZOMIB
     Indication: Primary amyloidosis
     Route: 065
     Dates: start: 202312
  2. CARFILZOMIB [Suspect]
     Active Substance: CARFILZOMIB
     Route: 065
     Dates: start: 202401
  3. CARFILZOMIB [Suspect]
     Active Substance: CARFILZOMIB
     Route: 065
     Dates: start: 202402
  4. DARZALEX [Suspect]
     Active Substance: DARATUMUMAB
     Indication: Primary amyloidosis
     Route: 065
     Dates: start: 202312
  5. DARZALEX [Suspect]
     Active Substance: DARATUMUMAB
     Route: 065
     Dates: start: 202401
  6. DARZALEX [Suspect]
     Active Substance: DARATUMUMAB
     Route: 065
     Dates: start: 202402
  7. CYCLOPHOSPHAMIDE [Suspect]
     Active Substance: CYCLOPHOSPHAMIDE
     Indication: Primary amyloidosis
     Route: 065
     Dates: start: 202312
  8. CYCLOPHOSPHAMIDE [Suspect]
     Active Substance: CYCLOPHOSPHAMIDE
     Route: 065
     Dates: start: 202401
  9. CYCLOPHOSPHAMIDE [Suspect]
     Active Substance: CYCLOPHOSPHAMIDE
     Route: 065
     Dates: start: 202402
  10. POMALIDOMIDE [Suspect]
     Active Substance: POMALIDOMIDE
     Indication: Product used for unknown indication
     Route: 065
  11. DEXAMETHASONE [Suspect]
     Active Substance: DEXAMETHASONE
     Indication: Product used for unknown indication
     Route: 065

REACTIONS (5)
  - Therapeutic product effect incomplete [Unknown]
  - Primary amyloidosis [Unknown]
  - Quadriplegia [Unknown]
  - Hypertension [Unknown]
  - Off label use [Unknown]
